FAERS Safety Report 10497628 (Version 3)
Quarter: 2014Q4

REPORT INFORMATION
  Report Type: Spontaneous
  Country: DE (occurrence: DE)
  Receive Date: 20141006
  Receipt Date: 20141126
  Transmission Date: 20150528
  Serious: Yes (Hospitalization)
  Sender: FDA-Public Use
  Company Number: PHHY2014DE125719

PATIENT
  Age: 20 Year
  Sex: Male

DRUGS (2)
  1. GILENYA [Suspect]
     Active Substance: FINGOLIMOD HYDROCHLORIDE
     Indication: MULTIPLE SCLEROSIS
     Dosage: 0.5 MG, DAILY
     Route: 048
     Dates: start: 201212, end: 201410
  2. INSULIN [Concomitant]
     Active Substance: INSULIN NOS
     Indication: DIABETES MELLITUS
     Route: 065

REACTIONS (3)
  - Vasculitis cerebral [Recovering/Resolving]
  - Central nervous system lesion [Recovering/Resolving]
  - Blood brain barrier defect [Not Recovered/Not Resolved]

NARRATIVE: CASE EVENT DATE: 20140825
